FAERS Safety Report 19980368 (Version 1)
Quarter: 2021Q4

REPORT INFORMATION
  Report Type: Spontaneous
  Country: BE (occurrence: BE)
  Receive Date: 20211021
  Receipt Date: 20211021
  Transmission Date: 20220303
  Serious: Yes (Other)
  Sender: FDA-Public Use
  Company Number: BE-EXELIXIS-CABO-21041834

PATIENT
  Age: 64 Year
  Sex: Male

DRUGS (10)
  1. CABOMETYX [Suspect]
     Active Substance: CABOZANTINIB S-MALATE
     Indication: Hepatocellular carcinoma
     Dosage: 60 MG, QD
     Dates: start: 20210607, end: 20210628
  2. CABOMETYX [Suspect]
     Active Substance: CABOZANTINIB S-MALATE
     Dosage: 60 MG, QD
     Dates: start: 20210806
  3. XARELTO [Concomitant]
     Active Substance: RIVAROXABAN
     Indication: Unevaluable event
  4. AMLODIPINE [Concomitant]
     Active Substance: AMLODIPINE BESYLATE
  5. GLICLAZIDE [Concomitant]
     Active Substance: GLICLAZIDE
     Dosage: UNK
  6. Pantomed [Concomitant]
  7. SERETIDE [Concomitant]
     Active Substance: FLUTICASONE PROPIONATE\SALMETEROL XINAFOATE
  8. FASENRA [Concomitant]
     Active Substance: BENRALIZUMAB
  9. ALPRAZOLAM [Concomitant]
     Active Substance: ALPRAZOLAM
  10. NEBIVOLOL [Concomitant]
     Active Substance: NEBIVOLOL

REACTIONS (3)
  - General physical health deterioration [Recovering/Resolving]
  - Thrombocytopenia [Unknown]
  - Neutropenia [Unknown]

NARRATIVE: CASE EVENT DATE: 20210601
